FAERS Safety Report 9936661 (Version 1)
Quarter: 2014Q1

REPORT INFORMATION
  Report Type: Spontaneous
  Country: US (occurrence: US)
  Receive Date: 20140228
  Receipt Date: 20140228
  Transmission Date: 20141002
  Serious: No
  Sender: FDA-Public Use
  Company Number: US-SANOFI-AVENTIS-2013SA041986

PATIENT
  Sex: Male
  Weight: 77.11 kg

DRUGS (6)
  1. DIABETA [Suspect]
     Dosage: DOSE:20 UNIT(S)
  2. DIABETA [Suspect]
     Dosage: DOSE:30 UNIT(S)
  3. DIABETA [Suspect]
     Dosage: DOSE:40 UNIT(S)
  4. DIABETA [Suspect]
     Dosage: DOSE:50 UNIT(S)
  5. DIABETA [Suspect]
     Dosage: DOSE:42 UNIT(S)
  6. DIURETICS [Concomitant]
     Dosage: THERAPY START DATE - 40 YEARS AGO

REACTIONS (3)
  - Weight decreased [Not Recovered/Not Resolved]
  - Drug ineffective [Unknown]
  - Blood glucose decreased [Not Recovered/Not Resolved]
